FAERS Safety Report 4441065-0 (Version None)
Quarter: 2004Q3

REPORT INFORMATION
  Report Type: 
  Country: None (occurrence: None)
  Receive Date: 20040902
  Receipt Date: 20040902
  Transmission Date: 20050211
  Serious: Yes (Hospitalization)
  Sender: FDA-Public Use
  Company Number: None

PATIENT
  Age: 44 Year
  Sex: Male
  Weight: 110.9 kg

DRUGS (9)
  1. GEMCITABINE [Suspect]
     Indication: COLON CANCER METASTATIC
     Dosage: 216MG OVER 24H Q INTRAVENOUS
     Route: 042
  2. IRINOTECAN [Suspect]
     Indication: COLON CANCER METASTATIC
     Dosage: 240MG OVER 24 Q INTRAVENOUS
     Route: 042
  3. HUMULIN 70/30 [Concomitant]
  4. LOTREL [Concomitant]
  5. NEURONTIN [Concomitant]
  6. LIPITOR [Concomitant]
  7. SYNTHROID [Concomitant]
  8. COUMADIN [Concomitant]
  9. GLUCOPHAGE [Concomitant]

REACTIONS (2)
  - FEBRILE NEUTROPENIA [None]
  - WHITE BLOOD CELL COUNT DECREASED [None]
